FAERS Safety Report 13463729 (Version 1)
Quarter: 2017Q2

REPORT INFORMATION
  Report Type: Spontaneous
  Country: US (occurrence: US)
  Receive Date: 20170420
  Receipt Date: 20170420
  Transmission Date: 20170830
  Serious: Yes (Other)
  Sender: FDA-Public Use
  Company Number: US-BAUSCH-BL-2017-009746

PATIENT
  Age: 53 Year
  Sex: Male
  Weight: 127.12 kg

DRUGS (1)
  1. AMBI FADE NORMAL SKIN [Suspect]
     Active Substance: HYDROQUINONE\OCTINOXATE
     Indication: THERAPEUTIC SKIN CARE TOPICAL
     Dosage: ONCE OR TWICE DAILY ON THE FACE
     Route: 061

REACTIONS (3)
  - Rash [Recovered/Resolved]
  - Skin irritation [Unknown]
  - Prostate cancer [Unknown]

NARRATIVE: CASE EVENT DATE: 201702
